FAERS Safety Report 12288432 (Version 3)
Quarter: 2016Q2

REPORT INFORMATION
  Report Type: Report from Study
  Country: US (occurrence: US)
  Receive Date: 20160420
  Receipt Date: 20160505
  Transmission Date: 20160815
  Serious: Yes (Other)
  Sender: FDA-Public Use
  Company Number: US-BIOGEN-2016BI00224043

PATIENT
  Age: 50 Year
  Sex: Female

DRUGS (9)
  1. AUBAGIO [Concomitant]
     Active Substance: TERIFLUNOMIDE
     Indication: PRODUCT USED FOR UNKNOWN INDICATION
     Route: 065
     Dates: start: 20160202, end: 20160222
  2. TYSABRI [Suspect]
     Active Substance: NATALIZUMAB
     Indication: MULTIPLE SCLEROSIS
     Route: 042
     Dates: start: 20100405, end: 20151028
  3. PERCOCET [Concomitant]
     Active Substance: ACETAMINOPHEN\OXYCODONE HYDROCHLORIDE
     Indication: PRODUCT USED FOR UNKNOWN INDICATION
     Dosage: ON MEDICATION SINCE MORE THAN 2 YEARS PRIOR TO REPORTING
     Route: 065
  4. XANAX [Concomitant]
     Active Substance: ALPRAZOLAM
     Indication: PRODUCT USED FOR UNKNOWN INDICATION
     Dosage: ON MEDICATION SINCE 4 YEARS PRIOR TO REPORTING
     Route: 065
  5. AMPYRA [Concomitant]
     Active Substance: DALFAMPRIDINE
     Indication: GAIT DISTURBANCE
     Route: 048
  6. NUCYNTA [Concomitant]
     Active Substance: TAPENTADOL HYDROCHLORIDE
     Indication: PRODUCT USED FOR UNKNOWN INDICATION
     Dosage: ON MEDICATION SINCE MORE THAN 2 YEARS PRIOR TO REPORTING
     Route: 065
  7. CYMBALTA [Concomitant]
     Active Substance: DULOXETINE HYDROCHLORIDE
     Indication: PRODUCT USED FOR UNKNOWN INDICATION
     Dosage: ON MEDICATION SINCE MORE THAN 4 YEARS PRIOR TO REPORTING
     Route: 065
  8. TYSABRI [Suspect]
     Active Substance: NATALIZUMAB
     Route: 042
     Dates: start: 201003
  9. LISINOPRIL/HCTZ [Concomitant]
     Active Substance: HYDROCHLOROTHIAZIDE\LISINOPRIL
     Indication: PRODUCT USED FOR UNKNOWN INDICATION
     Dosage: 20MG/12.5 MG SINCE 20 YEARS PRIOR TO REPORTING
     Route: 065

REACTIONS (9)
  - Diplopia [Unknown]
  - Multiple sclerosis [Not Recovered/Not Resolved]
  - Blindness unilateral [Unknown]
  - Fall [Recovered/Resolved]
  - Hypoaesthesia oral [Unknown]
  - Hemianaesthesia [Unknown]
  - Visual impairment [Unknown]
  - Muscular weakness [Unknown]
  - Vertigo [Unknown]

NARRATIVE: CASE EVENT DATE: 201601
